FAERS Safety Report 11677088 (Version 1)
Quarter: 2015Q4

REPORT INFORMATION
  Report Type: Other
  Country: GB (occurrence: GB)
  Receive Date: 20151028
  Receipt Date: 20151028
  Transmission Date: 20160304
  Serious: Yes (Hospitalization, Other)
  Sender: FDA-Public Use
  Company Number: GB-SHIRE-GB201513248

PATIENT
  Age: 27 Year
  Sex: Male

DRUGS (1)
  1. ELAPRASE [Suspect]
     Active Substance: IDURSULFASE
     Indication: MUCOPOLYSACCHARIDOSIS II
     Dosage: 24 MG (4 X 6MG VIALS), 1X/WEEK (AS DIRECTED)
     Route: 041
     Dates: start: 20131102

REACTIONS (1)
  - Intentional self-injury [Recovering/Resolving]

NARRATIVE: CASE EVENT DATE: 201510
